FAERS Safety Report 19653757 (Version 1)
Quarter: 2021Q3

REPORT INFORMATION
  Report Type: Report from Study
  Country: US (occurrence: US)
  Receive Date: 20210803
  Receipt Date: 20210803
  Transmission Date: 20211014
  Serious: Yes (Hospitalization)
  Sender: FDA-Public Use
  Company Number: US-PFIZER INC-202100953116

PATIENT
  Sex: Female
  Weight: 42.1 kg

DRUGS (11)
  1. DAUNORUBICIN [Suspect]
     Active Substance: DAUNORUBICIN
     Dosage: UNK
     Dates: end: 20200916
  2. DEXAMETHASONE. [Suspect]
     Active Substance: DEXAMETHASONE
     Dosage: UNK
     Dates: end: 20210614
  3. MERCAPTOPURINE. [Suspect]
     Active Substance: MERCAPTOPURINE
     Dosage: UNK
     Dates: end: 20210228
  4. METHOTREXATE SODIUM. [Suspect]
     Active Substance: METHOTREXATE SODIUM
     Dosage: UNK
     Dates: end: 20210709
  5. VINCRISTINE SULFATE. [Suspect]
     Active Substance: VINCRISTINE SULFATE
     Dosage: UNK
     Dates: end: 20210713
  6. CYTARABINE. [Suspect]
     Active Substance: CYTARABINE
     Dosage: UNK
     Dates: end: 20210709
  7. INOTUZUMAB OZOGAMICIN [Suspect]
     Active Substance: INOTUZUMAB OZOGAMICIN
     Dosage: UNK
     Dates: end: 20201125
  8. THIOGUANINE [Suspect]
     Active Substance: THIOGUANINE
     Dosage: UNK
     Dates: end: 20210712
  9. DOXORUBICIN HCL [Suspect]
     Active Substance: DOXORUBICIN HYDROCHLORIDE
     Dosage: UNK
     Dates: end: 20200908
  10. CYCLOPHOSPHAMIDE. [Suspect]
     Active Substance: CYCLOPHOSPHAMIDE
     Dosage: UNK
     Dates: end: 20210629
  11. ONCASPAR [Suspect]
     Active Substance: PEGASPARGASE
     Dosage: UNK
     Dates: end: 20210713

REACTIONS (1)
  - Febrile neutropenia [Not Recovered/Not Resolved]

NARRATIVE: CASE EVENT DATE: 20210715
